FAERS Safety Report 5855051-7 (Version None)
Quarter: 2008Q3

REPORT INFORMATION
  Report Type: 
  Country: None (occurrence: None)
  Receive Date: 20080822
  Receipt Date: 20080616
  Transmission Date: 20090109
  Serious: No
  Sender: FDA-Public Use
  Company Number: US-ABBOTT-08P-163-0457883-00

PATIENT
  Sex: Female
  Weight: 52.21 kg

DRUGS (6)
  1. SYNTHROID [Suspect]
     Indication: HYPOTHYROIDISM
     Route: 048
     Dates: start: 20080526, end: 20080619
  2. ESTRADIOL INJ [Concomitant]
     Indication: MENOPAUSE
     Dosage: 4 PUMPS A DAY
  3. PROGESTERONE [Concomitant]
     Indication: MENOPAUSE
  4. ALPRAZOLAM [Concomitant]
     Indication: PANIC ATTACK
     Route: 048
  5. PROGESTERONE [Concomitant]
     Route: 048
  6. ESTRODIAL [Concomitant]
     Indication: MENOPAUSE
     Route: 050

REACTIONS (10)
  - CRYING [None]
  - DISORIENTATION [None]
  - DYSFUNCTIONAL UTERINE BLEEDING [None]
  - ENDOMETRIAL HYPERPLASIA [None]
  - INSOMNIA [None]
  - PANIC ATTACK [None]
  - PARANOIA [None]
  - SENSATION OF HEAVINESS [None]
  - TACHYCARDIA [None]
  - UTERINE DILATION AND CURETTAGE [None]
